FAERS Safety Report 7197569-3 (Version None)
Quarter: 2010Q4

REPORT INFORMATION
  Report Type: 
  Country: None (occurrence: None)
  Receive Date: 20101213
  Receipt Date: 20101202
  Transmission Date: 20110411
  Serious: Yes (Hospitalization)
  Sender: FDA-Public Use
  Company Number: 023305

PATIENT
  Age: 21 Month
  Sex: Male

DRUGS (5)
  1. LEVOCETIRIZINE (LEVOCETIRIZINE) [Suspect]
  2. CETIRIZINE (CETIRIZINE) [Suspect]
  3. RANITIDINE [Suspect]
  4. DEXCHLORPHENIRAMINE (DEXCHLORPHENIRAMINE) [Suspect]
  5. PMS-SODIUM CROMOGLYCATE (DISODIUM CHROMOGLYCATE) NOT SPECIFIED [Suspect]
     Dosage: (ORAL), (TOPICAL)

REACTIONS (5)
  - BLOOD TRYPSIN INCREASED [None]
  - DERMATITIS ATOPIC [None]
  - DIFFUSE CUTANEOUS MASTOCYTOSIS [None]
  - GENERAL PHYSICAL HEALTH DETERIORATION [None]
  - SOMNOLENCE [None]
